FAERS Safety Report 9201194 (Version 1)
Quarter: 2013Q1

REPORT INFORMATION
  Report Type: Spontaneous
  Country: US (occurrence: None)
  Receive Date: 20130327
  Receipt Date: 20130327
  Transmission Date: 20140127
  Serious: Yes (Other)
  Sender: FDA-Public Use
  Company Number: ADR-2013-00484

PATIENT
  Sex: Male

DRUGS (3)
  1. BACLOFEN [Suspect]
     Indication: PAIN
     Route: 037
  2. FENTANYL [Concomitant]
  3. CLONIDINE [Concomitant]

REACTIONS (1)
  - Pulmonary oedema [None]
